FAERS Safety Report 9290058 (Version 1)
Quarter: 2012Q4

REPORT INFORMATION
  Report Type: Spontaneous
  Country: DE (occurrence: None)
  Receive Date: 20121130
  Receipt Date: 20121130
  Transmission Date: 20130627
  Serious: Yes (Life-Threatening, Hospitalization)
  Sender: FDA-Public Use
  Company Number: FR-2012-3785

PATIENT
  Age: 47 Year
  Sex: Female
  Weight: 62 kg

DRUGS (4)
  1. NAVELBINE (VINORELBINE TARTRATE) INFUSION [Suspect]
     Indication: BREAST CANCER METASTATIC
     Route: 042
     Dates: start: 20120927
  2. NAVELBINE (VINORELBINE TARTRATE) INFUSION [Suspect]
     Indication: BRAIN METASTASES
     Route: 042
     Dates: start: 20120927
  3. AFATINIB [Suspect]
     Indication: BREAST CANCER METASTATIC
     Dates: start: 20120927
  4. AFATINIB [Suspect]
     Indication: BRAIN METASTASES
     Dates: start: 20120927

REACTIONS (6)
  - Lung infection [None]
  - Urosepsis [None]
  - Diarrhoea [None]
  - Asthenia [None]
  - Rash [None]
  - Epilepsy [None]
